FAERS Safety Report 12319975 (Version 3)
Quarter: 2017Q4

REPORT INFORMATION
  Report Type: Report from Study
  Country: US (occurrence: US)
  Receive Date: 20160429
  Receipt Date: 20171207
  Transmission Date: 20180320
  Serious: Yes (Hospitalization)
  Sender: FDA-Public Use
  Company Number: US-ACTELION-A-NJ2015-122106

PATIENT
  Age: 74 Year
  Sex: Female

DRUGS (3)
  1. OPSUMIT [Suspect]
     Active Substance: MACITENTAN
     Indication: PULMONARY ARTERIAL HYPERTENSION
     Dosage: 10 MG, QD
     Route: 048
     Dates: start: 20150623
  2. REVATIO [Concomitant]
     Active Substance: SILDENAFIL CITRATE
  3. LISINOPRIL. [Concomitant]
     Active Substance: LISINOPRIL
     Dosage: UNK, TID

REACTIONS (14)
  - Hypertension [Unknown]
  - Sinusitis [Unknown]
  - Peripheral swelling [Not Recovered/Not Resolved]
  - Fall [Recovered/Resolved]
  - Oedema peripheral [Unknown]
  - Dyspnoea [Unknown]
  - Blood potassium decreased [Unknown]
  - Blood magnesium decreased [Unknown]
  - Weight increased [Unknown]
  - Memory impairment [Recovered/Resolved]
  - Oxygen therapy [Unknown]
  - Feeling abnormal [Recovered/Resolved]
  - Syncope [Unknown]
  - Loss of personal independence in daily activities [Unknown]

NARRATIVE: CASE EVENT DATE: 201601
